FAERS Safety Report 9132272 (Version 2)
Quarter: 2013Q1

REPORT INFORMATION
  Report Type: Spontaneous
  Country: US (occurrence: US)
  Receive Date: 20130301
  Receipt Date: 20130313
  Transmission Date: 20140127
  Serious: Yes (Other)
  Sender: FDA-Public Use
  Company Number: US-BAYER-2013-024827

PATIENT
  Age: 31 Year
  Sex: Female
  Weight: 57.6 kg

DRUGS (2)
  1. MIRENA [Suspect]
     Indication: CONTRACEPTION
     Dosage: 20 MCG/24HR, CONT
     Route: 015
     Dates: start: 2012, end: 20130207
  2. MIRENA [Suspect]
     Indication: MENORRHAGIA

REACTIONS (4)
  - Vaginitis bacterial [Recovering/Resolving]
  - Fungal infection [Recovering/Resolving]
  - Vaginal odour [Recovering/Resolving]
  - Vaginal discharge [Recovering/Resolving]
